FAERS Safety Report 4504982-9 (Version None)
Quarter: 2004Q4

REPORT INFORMATION
  Report Type: 
  Country: None (occurrence: None)
  Receive Date: 20041015
  Receipt Date: 20031201
  Transmission Date: 20050328
  Serious: Yes (Other)
  Sender: FDA-Public Use
  Company Number: 2003118178

PATIENT
  Age: 65 Year
  Sex: Female
  Weight: 63.5036 kg

DRUGS (8)
  1. NEURONTIN [Suspect]
     Indication: CONVULSION
     Dosage: 1800 MG (TID) ORAL
     Route: 048
  2. DILANTIN [Concomitant]
  3. ZOLOFT [Concomitant]
  4. ATENOLOL [Concomitant]
  5. RANITIDINE HYDROCHLORIDE [Concomitant]
  6. VALERIAN ROOT (VALERIANA OFFICINALIS ROOT) [Concomitant]
  7. MULTIVITAMIN [Concomitant]
  8. METAMUCIL-2 [Concomitant]

REACTIONS (2)
  - DEPRESSION [None]
  - INTENTIONAL SELF-INJURY [None]
